FAERS Safety Report 15538044 (Version 2)
Quarter: 2018Q4

REPORT INFORMATION
  Report Type: Spontaneous
  Country: US (occurrence: US)
  Receive Date: 20181022
  Receipt Date: 20181120
  Transmission Date: 20190205
  Serious: Yes (Hospitalization, Other)
  Sender: FDA-Public Use
  Company Number: US-COLLEGIUM PHARMACEUTICAL, INC.-2018CGM00318

PATIENT
  Age: 68 Year
  Sex: Male
  Weight: 66.85 kg

DRUGS (15)
  1. DEXAMETHASONE. [Concomitant]
     Active Substance: DEXAMETHASONE
  2. MULTIVITAMIN [Concomitant]
     Active Substance: VITAMINS
  3. XTAMPZA ER [Suspect]
     Active Substance: OXYCODONE
     Indication: TONSIL CANCER
  4. XTAMPZA ER [Suspect]
     Active Substance: OXYCODONE
     Indication: PAIN
  5. BACTRIM [Concomitant]
     Active Substance: SULFAMETHOXAZOLE\TRIMETHOPRIM
     Dosage: UNK
     Dates: start: 20181005
  6. PROCHLORPERAZINE. [Concomitant]
     Active Substance: PROCHLORPERAZINE
  7. LIDOCAINE VISCOUS [Concomitant]
     Active Substance: LIDOCAINE HYDROCHLORIDE
  8. ZOFRAN [Concomitant]
     Active Substance: ONDANSETRON HYDROCHLORIDE
  9. XTAMPZA ER [Suspect]
     Active Substance: OXYCODONE
     Indication: HEAD AND NECK CANCER
     Dosage: 9 MG, 2X/DAY
     Route: 048
     Dates: start: 20180924, end: 20181001
  10. XTAMPZA ER [Suspect]
     Active Substance: OXYCODONE
     Indication: RADIOTHERAPY
  11. XTAMPZA ER [Suspect]
     Active Substance: OXYCODONE
     Indication: PAIN
     Dosage: 13.5 MG, 2X/DAY
     Route: 048
     Dates: start: 20181002, end: 20181008
  12. PROTONIX [Concomitant]
     Active Substance: PANTOPRAZOLE SODIUM
  13. XTAMPZA ER [Suspect]
     Active Substance: OXYCODONE
     Indication: TONSIL CANCER
  14. ATIVAN [Concomitant]
     Active Substance: LORAZEPAM
  15. HYDROCODONE/TYLENOL [Concomitant]

REACTIONS (6)
  - Metabolic encephalopathy [Not Recovered/Not Resolved]
  - Oral candidiasis [Recovering/Resolving]
  - Pyrexia [Recovered/Resolved]
  - Delirium [Not Recovered/Not Resolved]
  - Pneumonia [Not Recovered/Not Resolved]
  - Hyponatraemia [Recovered/Resolved]

NARRATIVE: CASE EVENT DATE: 2018
